FAERS Safety Report 19111239 (Version 3)
Quarter: 2021Q4

REPORT INFORMATION
  Report Type: Spontaneous
  Country: JP (occurrence: JP)
  Receive Date: 20210408
  Receipt Date: 20211001
  Transmission Date: 20220303
  Serious: Yes (Other)
  Sender: FDA-Public Use
  Company Number: JP-BRISTOL-MYERS SQUIBB COMPANY-BMS-2020-105485

PATIENT
  Age: 6 Decade

DRUGS (6)
  1. OPDIVO [Suspect]
     Active Substance: NIVOLUMAB
     Indication: Metastatic renal cell carcinoma
     Dosage: ONE TIME DOSE
     Route: 041
     Dates: start: 20200310, end: 20200310
  2. OPDIVO [Suspect]
     Active Substance: NIVOLUMAB
     Dosage: ONE TIME DOSE
     Route: 041
     Dates: start: 20200519, end: 20200519
  3. OPDIVO [Suspect]
     Active Substance: NIVOLUMAB
     Dosage: UNK
     Route: 041
     Dates: start: 20200902, end: 20201028
  4. YERVOY [Suspect]
     Active Substance: IPILIMUMAB
     Indication: Metastatic renal cell carcinoma
     Dosage: ONE TIME DOSE
     Route: 041
     Dates: start: 20200310, end: 20200310
  5. YERVOY [Suspect]
     Active Substance: IPILIMUMAB
     Dosage: ONE TIME DOSE
     Route: 041
     Dates: start: 20200519, end: 20200519
  6. TELMISARTAN [Concomitant]
     Active Substance: TELMISARTAN
     Indication: Product used for unknown indication
     Dosage: UNK
     Route: 065

REACTIONS (4)
  - Pancreatitis [Unknown]
  - Rash papular [Unknown]
  - Blood corticotrophin decreased [Recovered/Resolved]
  - Blood glucose increased [Unknown]

NARRATIVE: CASE EVENT DATE: 20200601
